FAERS Safety Report 5149907-0 (Version None)
Quarter: 2006Q4

REPORT INFORMATION
  Report Type: 
  Country: None (occurrence: None)
  Receive Date: 20060918
  Receipt Date: 20060711
  Transmission Date: 20070319
  Serious: Yes (Other)
  Sender: FDA-Public Use
  Company Number: US-JNJFOC-20060405278

PATIENT
  Age: 63 Year
  Sex: Female
  Weight: 67.586 kg

DRUGS (6)
  1. TOPAMAX [Suspect]
     Indication: CONVULSION
     Dosage: 50 MG, IN 1 DAY, ORAL
     Route: 048
     Dates: start: 20060301, end: 20060420
  2. BUSPAR [Concomitant]
  3. ZOLOFT [Concomitant]
  4. LIPITOR [Concomitant]
  5. ATENOLOL [Concomitant]
  6. NAPROXEN [Concomitant]

REACTIONS (13)
  - ALOPECIA [None]
  - BURNING SENSATION [None]
  - DIZZINESS [None]
  - FORMICATION [None]
  - HYPOGLYCAEMIA [None]
  - PRURITUS [None]
  - RASH [None]
  - RASH PRURITIC [None]
  - SKIN DISCOLOURATION [None]
  - SOMNOLENCE [None]
  - TINEA CAPITIS [None]
  - VISION BLURRED [None]
  - WEIGHT DECREASED [None]
